FAERS Safety Report 25872586 (Version 1)
Quarter: 2025Q4

REPORT INFORMATION
  Report Type: Spontaneous
  Country: EU (occurrence: EU)
  Receive Date: 20251002
  Receipt Date: 20251002
  Transmission Date: 20260117
  Serious: Yes (Life-Threatening, Other)
  Sender: AUROBINDO
  Company Number: EU-AFSSAPS-AM2025000709

PATIENT
  Age: 64 Year
  Sex: Female

DRUGS (5)
  1. ALPRAZOLAM [Suspect]
     Active Substance: ALPRAZOLAM
     Indication: Anxiety
     Dosage: 0.75 MILLIGRAM, ONCE A DAY
     Route: 048
  2. BISOPROLOL [Suspect]
     Active Substance: BISOPROLOL
     Indication: Hypertension
     Dosage: UNK
     Route: 048
  3. HYDREA [Suspect]
     Active Substance: HYDROXYUREA
     Indication: Myeloproliferative neoplasm
     Dosage: UNK
     Route: 048
     Dates: start: 20220615, end: 20250805
  4. KARDEGIC [Suspect]
     Active Substance: ASPIRIN DL-LYSINE
     Indication: Thrombosis prophylaxis
     Dosage: 1 DOSAGE FORM, ONCE A DAY
     Route: 048
     Dates: start: 20220615
  5. HAWTHORN LEAF WITH FLOWER\QUININE [Suspect]
     Active Substance: HAWTHORN LEAF WITH FLOWER\QUININE
     Indication: Muscle spasms
     Dosage: 4 DOSAGE FORM, ONCE A DAY
     Route: 048
     Dates: end: 20250804

REACTIONS (1)
  - Pancreatitis necrotising [Recovering/Resolving]

NARRATIVE: CASE EVENT DATE: 20250727
